FAERS Safety Report 16152282 (Version 1)
Quarter: 2019Q2

REPORT INFORMATION
  Report Type: Spontaneous
  Country: US (occurrence: US)
  Receive Date: 20190403
  Receipt Date: 20190403
  Transmission Date: 20190711
  Serious: No
  Sender: FDA-Public Use
  Company Number: US-GLENMARK PHARMACEUTICALS-2019GMK039543

PATIENT

DRUGS (1)
  1. DESONIDE OINTMENT, 0.05% [Suspect]
     Active Substance: DESONIDE
     Indication: DRY SKIN
     Dosage: UNK, OD
     Route: 061

REACTIONS (2)
  - Product use in unapproved indication [Unknown]
  - Intercepted medication error [Unknown]
